FAERS Safety Report 8463258-8 (Version None)
Quarter: 2012Q2

REPORT INFORMATION
  Report Type: 
  Country: None (occurrence: None)
  Receive Date: 20120625
  Receipt Date: 20120614
  Transmission Date: 20120825
  Serious: Yes (Other)
  Sender: FDA-Public Use
  Company Number: US-BRISTOL-MYERS SQUIBB COMPANY-16684540

PATIENT
  Age: 81 Year
  Sex: Female
  Weight: 70 kg

DRUGS (1)
  1. ONGLYZA [Suspect]
     Indication: DIABETES MELLITUS
     Dosage: CUT HALF FOR A WEEKEND,DOSE DECD AND INCD FOR 6-8WKS
     Route: 048

REACTIONS (2)
  - MEDICATION ERROR [None]
  - SPINAL FRACTURE [None]
